FAERS Safety Report 5021543-6 (Version None)
Quarter: 2006Q2

REPORT INFORMATION
  Report Type: 
  Country: None (occurrence: None)
  Receive Date: 20060601
  Receipt Date: 20060309
  Transmission Date: 20061013
  Serious: No
  Sender: FDA-Public Use
  Company Number: 2006PV009978

PATIENT
  Age: 73 Year
  Sex: Female
  Weight: 72.5755 kg

DRUGS (8)
  1. BYETTA [Suspect]
     Indication: DIABETES MELLITUS NON-INSULIN-DEPENDENT
     Dosage: 5 MCG;BID;SC
     Route: 058
     Dates: start: 20060227, end: 20060308
  2. PLAVIX [Concomitant]
  3. NORVASC [Concomitant]
  4. ALTACE [Concomitant]
  5. NIACIN [Concomitant]
  6. SYNTHROID [Concomitant]
  7. NOVALOG [Concomitant]
  8. LANTUS [Concomitant]

REACTIONS (4)
  - CHILLS [None]
  - DECREASED APPETITE [None]
  - NAUSEA [None]
  - PERIPHERAL COLDNESS [None]
